FAERS Safety Report 4391177-5 (Version None)
Quarter: 2004Q2

REPORT INFORMATION
  Report Type: 
  Country: None (occurrence: None)
  Receive Date: 20040621
  Receipt Date: 20031201
  Transmission Date: 20050107
  Serious: Yes (Death)
  Sender: FDA-Public Use
  Company Number: USA-2003-0011582

PATIENT
  Age: 35 Year
  Sex: Male
  Weight: 99.3 kg

DRUGS (7)
  1. OXYCODONE HCL [Suspect]
     Dosage: MG
  2. COCAINE (COCAINE) [Suspect]
     Dosage: MG
  3. DIAZEPAM [Suspect]
     Dosage: MG
  4. OXAZEPAM [Suspect]
  5. CANNABIS (CANNABIS) [Suspect]
     Dosage: MG
  6. LIDOCAINE [Suspect]
     Dosage: MG
  7. ATENOLOL [Suspect]
     Dosage: MG

REACTIONS (2)
  - ACCIDENTAL OVERDOSE [None]
  - MULTIPLE DRUG OVERDOSE [None]
